FAERS Safety Report 6399307-0 (Version None)
Quarter: 2009Q4

REPORT INFORMATION
  Report Type: 
  Country: None (occurrence: None)
  Receive Date: 20091014
  Receipt Date: 20071206
  Transmission Date: 20100525
  Serious: Yes (Other)
  Sender: FDA-Public Use
  Company Number: US-ASTRAZENECA-2006UW27792

PATIENT
  Age: 35 Year
  Sex: Female
  Weight: 114.8 kg

DRUGS (13)
  1. SEROQUEL [Suspect]
     Indication: DEPRESSION
     Dosage: 200MG -300MG
     Route: 048
     Dates: start: 20040721
  2. SEROQUEL [Suspect]
     Indication: BIPOLAR DISORDER
     Dosage: 200MG -300MG
     Route: 048
     Dates: start: 20040721
  3. SEROQUEL [Suspect]
     Route: 048
     Dates: start: 20050226, end: 20060501
  4. SEROQUEL [Suspect]
     Route: 048
     Dates: start: 20050226, end: 20060501
  5. FLUOXETINE HCL [Concomitant]
     Dosage: 10MG -20MG, CAPSULE/TABLET
     Route: 048
     Dates: start: 20050225
  6. TRAZODONE [Concomitant]
     Dosage: 5MG -150MG
     Route: 048
     Dates: start: 20050225
  7. ALPRAZOLAM [Concomitant]
     Dosage: 0.5MG - 1 MG
     Route: 048
     Dates: start: 20050225
  8. SKELAXIN [Concomitant]
     Route: 048
     Dates: start: 20050418
  9. AMRIX [Concomitant]
     Route: 048
     Dates: start: 20030812
  10. NEXIUM [Concomitant]
     Route: 048
     Dates: start: 20050927
  11. CARISOPRODOL [Concomitant]
     Route: 048
     Dates: start: 20040802
  12. LEXAPRO [Concomitant]
     Route: 048
     Dates: start: 20051204
  13. HYDROCODONE BITARTRATE AND ACETAMINOPHEN [Concomitant]
     Dosage: 5/500MG - 10/650MG
     Route: 048
     Dates: start: 20040802

REACTIONS (3)
  - DIABETES MELLITUS [None]
  - DIABETIC COMPLICATION [None]
  - DIABETIC FOOT [None]
